FAERS Safety Report 7407614-5 (Version None)
Quarter: 2011Q2

REPORT INFORMATION
  Report Type: 
  Country: None (occurrence: None)
  Receive Date: 20110404
  Receipt Date: 20110322
  Transmission Date: 20111010
  Serious: Yes (Hospitalization)
  Sender: FDA-Public Use
  Company Number: 027598

PATIENT
  Sex: Female
  Weight: 101.2 kg

DRUGS (5)
  1. CIMZIA [Suspect]
     Indication: RHEUMATOID ARTHRITIS
     Dosage: 200 MG 1X/2 WEEKS SUBCUTANEOUS
     Route: 058
     Dates: start: 20101201, end: 20110216
  2. FOLIC ACID [Concomitant]
  3. PREDNISOLONE [Concomitant]
  4. NOVOTHYRAL [Concomitant]
  5. LANTAREL [Concomitant]

REACTIONS (6)
  - NASOPHARYNGITIS [None]
  - DERMATITIS ALLERGIC [None]
  - INJECTION SITE RASH [None]
  - TENSION [None]
  - FEELING ABNORMAL [None]
  - OEDEMA PERIPHERAL [None]
